FAERS Safety Report 9692769 (Version 1)
Quarter: 2013Q4

REPORT INFORMATION
  Report Type: Spontaneous
  Country: US (occurrence: None)
  Receive Date: 20131115
  Receipt Date: 20131115
  Transmission Date: 20140711
  Serious: Yes (Life-Threatening, Hospitalization, Disabling)
  Sender: FDA-Public Use
  Company Number: None

PATIENT
  Age: 25 Year
  Sex: Male
  Weight: 86.8 kg

DRUGS (1)
  1. ADDERALL [Suspect]
     Indication: ATTENTION DEFICIT/HYPERACTIVITY DISORDER
     Route: 048
     Dates: start: 20121215, end: 20130907

REACTIONS (6)
  - Cardiac arrest [None]
  - Syncope [None]
  - Pneumonia aspiration [None]
  - Atrial fibrillation [None]
  - Ventricular tachycardia [None]
  - Cardiomyopathy [None]
